FAERS Safety Report 25391974 (Version 2)
Quarter: 2025Q3

REPORT INFORMATION
  Report Type: Spontaneous
  Country: US (occurrence: US)
  Receive Date: 20250603
  Receipt Date: 20250904
  Transmission Date: 20251021
  Serious: Yes (Hospitalization, Other)
  Sender: ABBVIE
  Company Number: US-ABBVIE-6308353

PATIENT
  Age: 76 Year
  Sex: Female
  Weight: 80.285 kg

DRUGS (17)
  1. DIVALPROEX SODIUM [Suspect]
     Active Substance: DIVALPROEX SODIUM
     Indication: Migraine
     Dosage: 250 MILLIGRAM
     Route: 048
     Dates: start: 202404, end: 20250417
  2. VITAMIN D3 [Concomitant]
     Active Substance: CHOLECALCIFEROL
     Indication: Vitamin D decreased
  3. VITAMIN B12 [Concomitant]
     Active Substance: CYANOCOBALAMIN
     Indication: Vitamin B12 decreased
  4. AMLODIPINE [Concomitant]
     Active Substance: AMLODIPINE BESYLATE
     Indication: Hypertension
  5. CALCIUM [Concomitant]
     Active Substance: CALCIUM
     Indication: Osteopenia
  6. PRAVASTATIN [Concomitant]
     Active Substance: PRAVASTATIN
     Indication: Blood cholesterol increased
  7. PEPCID [Concomitant]
     Active Substance: FAMOTIDINE
     Indication: Gastrooesophageal reflux disease
  8. NAMENDA [Concomitant]
     Active Substance: MEMANTINE HYDROCHLORIDE
     Indication: Post concussion syndrome
  9. HYDRALAZINE [Concomitant]
     Active Substance: HYDRALAZINE HYDROCHLORIDE
     Indication: Hypertension
  10. DIVALPROEX SODIUM [Suspect]
     Active Substance: DIVALPROEX SODIUM
     Indication: Migraine
     Route: 048
     Dates: start: 20250417, end: 20250421
  11. DIVALPROEX SODIUM [Suspect]
     Active Substance: DIVALPROEX SODIUM
     Indication: Migraine
     Route: 048
     Dates: start: 20250422, end: 20250501
  12. DIVALPROEX SODIUM [Suspect]
     Active Substance: DIVALPROEX SODIUM
     Indication: Migraine
     Dosage: 2000 MILLIGRAM
     Route: 048
     Dates: start: 20250502, end: 20250510
  13. DIVALPROEX SODIUM [Suspect]
     Active Substance: DIVALPROEX SODIUM
     Indication: Migraine
     Route: 048
     Dates: start: 20250511, end: 20250514
  14. DIVALPROEX SODIUM [Suspect]
     Active Substance: DIVALPROEX SODIUM
     Indication: Migraine
     Route: 048
     Dates: start: 20250515, end: 20250519
  15. DIVALPROEX SODIUM [Suspect]
     Active Substance: DIVALPROEX SODIUM
     Indication: Migraine
     Dosage: 500 MILLIGRAM
     Route: 048
     Dates: start: 20250520, end: 20250522
  16. DIVALPROEX SODIUM [Suspect]
     Active Substance: DIVALPROEX SODIUM
     Indication: Migraine
     Dosage: 250 MILLIGRAM
     Route: 048
     Dates: start: 20250523, end: 20250525
  17. DIVALPROEX SODIUM [Suspect]
     Active Substance: DIVALPROEX SODIUM
     Indication: Migraine
     Dosage: CUTTING TABLET INTO HALF TO MAKE FOR 125 MILLIGRAMS
     Route: 048
     Dates: start: 20250526, end: 20250528

REACTIONS (16)
  - Hypoaesthesia [Recovered/Resolved]
  - Hypoaesthesia [Recovered/Resolved]
  - Vision blurred [Recovered/Resolved]
  - Speech disorder [Recovered/Resolved]
  - Balance disorder [Recovered/Resolved]
  - Vision blurred [Recovered/Resolved]
  - Vision blurred [Recovered/Resolved]
  - Constipation [Recovered/Resolved]
  - Wrong technique in product usage process [Not Recovered/Not Resolved]
  - Hypoaesthesia [Recovering/Resolving]
  - Insomnia [Recovered/Resolved]
  - Dizziness [Recovered/Resolved]
  - Deafness [Recovering/Resolving]
  - Paraesthesia [Recovered/Resolved]
  - Skin burning sensation [Recovered/Resolved]
  - Hypoaesthesia [Recovered/Resolved]

NARRATIVE: CASE EVENT DATE: 20250416
